FAERS Safety Report 8304372-7 (Version None)
Quarter: 2012Q2

REPORT INFORMATION
  Report Type: 
  Country: None (occurrence: None)
  Receive Date: 20120423
  Receipt Date: 20120409
  Transmission Date: 20120825
  Serious: Yes (Hospitalization, Other)
  Sender: FDA-Public Use
  Company Number: JP-ELI_LILLY_AND_COMPANY-JP201203008619

PATIENT
  Sex: Female

DRUGS (4)
  1. ZYPREXA [Suspect]
     Dosage: UNK
     Route: 048
     Dates: start: 20100615, end: 20100615
  2. MEILAX [Concomitant]
     Dosage: UNK
     Route: 048
  3. ZYPREXA [Suspect]
     Indication: MENTAL DISORDER
     Dosage: UNK
     Route: 048
  4. MEILAX [Concomitant]
     Dosage: UNK
     Route: 048
     Dates: start: 20100615, end: 20100615

REACTIONS (5)
  - TOXICITY TO VARIOUS AGENTS [None]
  - AKATHISIA [None]
  - INTENTIONAL OVERDOSE [None]
  - ALTERED STATE OF CONSCIOUSNESS [None]
  - SUICIDAL IDEATION [None]
